FAERS Safety Report 16346975 (Version 2)
Quarter: 2019Q3

REPORT INFORMATION
  Report Type: Spontaneous
  Country: CZ (occurrence: CZ)
  Receive Date: 20190523
  Receipt Date: 20190706
  Transmission Date: 20191004
  Serious: Yes (Hospitalization, Other)
  Sender: FDA-Public Use
  Company Number: CZ-AUROBINDO-AUR-APL-2019-028442

PATIENT

DRUGS (3)
  1. PARACETAMOL TABLET [Suspect]
     Active Substance: ACETAMINOPHEN
     Indication: MUSCULOSKELETAL PAIN
     Dosage: 6 OR MORE TABLETAS A DAY
     Route: 065
  2. TRAMADOL. [Suspect]
     Active Substance: TRAMADOL
     Indication: PAIN
     Dosage: UNK
     Route: 065
  3. DICLOFENAC [Suspect]
     Active Substance: DICLOFENAC
     Indication: MUSCULOSKELETAL PAIN
     Dosage: 50 MILLIGRAM, TWO TIMES A DAY (2 X 50 MG A DAY)
     Route: 065

REACTIONS (5)
  - Nausea [Unknown]
  - Abdominal pain upper [Recovered/Resolved]
  - Gastrointestinal ulcer haemorrhage [Recovered/Resolved]
  - Abdominal discomfort [Unknown]
  - Discoloured vomit [Recovered/Resolved]

NARRATIVE: CASE EVENT DATE: 2017
